FAERS Safety Report 10506748 (Version 1)
Quarter: 2014Q4

REPORT INFORMATION
  Report Type: Spontaneous
  Country: AU (occurrence: None)
  Receive Date: 20141007
  Receipt Date: 20141007
  Transmission Date: 20150528
  Serious: Yes (Other)
  Sender: FDA-Public Use
  Company Number: VAL_03468_2014

PATIENT
  Sex: Female

DRUGS (9)
  1. DIGOXIN (DIGOXIN) [Suspect]
     Active Substance: DIGOXIN
     Indication: PRODUCT USED FOR UNKNOWN INDICATION
     Dosage: THERAPY DATES UNKNOWN UNTIL NOT CONTINUING
     Route: 064
  2. MAGNESIUM SULPHATE /07507001/ [Suspect]
     Active Substance: MAGNESIUM SULFATE
     Indication: PRODUCT USED FOR UNKNOWN INDICATION
     Dosage: {MATERNAL DOSE] FREQUENCY UNSPECIFIED THERAPY DATES UNKNOWN
     Route: 064
  3. OXYTOCIN. [Suspect]
     Active Substance: OXYTOCIN
     Indication: PRODUCT USED FOR UNKNOWN INDICATION
     Dosage: [MATERNAL DOSE] TRANSPLACENTAL ) THERAPY DATES UNKNOWN UNTIL NOT CONTINUING)
     Route: 064
  4. METOPROLOL (METOPROLOL - METOPROLOL TARTRATE) [Suspect]
     Active Substance: METOPROLOL
     Indication: PRODUCT USED FOR UNKNOWN INDICATION
     Dosage: THERAPY UNKNOWN UNTIL NOT CONTINUING
     Route: 064
  5. ADENOSINE. [Suspect]
     Active Substance: ADENOSINE
     Indication: PRODUCT USED FOR UNKNOWN INDICATION
     Dosage: ( [ MATERNAL DOSE] ) TRANSPLACENTAL (THERAPY DATES UNKNOWN UNTIL NOT CONTINUING)
     Route: 064
  6. FLECAINIDE (FLECAINIDE) [Suspect]
     Active Substance: FLECAINIDE
     Indication: PRODUCT USED FOR UNKNOWN INDICATION
     Dosage: (50 MG BID, FREQUENCY UNSPECIFIED [MATERNAL DOSE] TRANSPLACENTAL) THERAPY DATES UNKNOWN UNTIL NOT CONTINUING
     Route: 064
  7. FENTANYL (FENTANYL) [Suspect]
     Active Substance: FENTANYL
     Indication: PRODUCT USED FOR UNKNOWN INDICATION
     Dosage: ([MATERNAL DOSE] )  (THERAPY DATES UNKNOWN UNTIL NOT CONTINUING)
     Route: 064
  8. SOTALOL (SOTALOL) [Suspect]
     Active Substance: SOTALOL
     Indication: PRODUCT USED FOR UNKNOWN INDICATION
     Dosage: ([ MATERNAL DOSE] TRANSPLACENTAL) (THERAPY DATES UNKNOWN UNTIL NOT CONTINUING)
     Route: 064
  9. ROPIVACAINE [Suspect]
     Active Substance: ROPIVACAINE
     Indication: PRODUCT USED FOR UNKNOWN INDICATION
     Dosage: FREQUENCY UNSPECIFIED [MATERNAL DOSE] TRANSPLACENTAL)
     Route: 064

REACTIONS (2)
  - Maternal drugs affecting foetus [None]
  - Premature baby [None]
